FAERS Safety Report 6336098-3 (Version None)
Quarter: 2009Q3

REPORT INFORMATION
  Report Type: 
  Country: None (occurrence: None)
  Receive Date: 20090828
  Receipt Date: 20090828
  Transmission Date: 20100115
  Serious: Yes (Disabling)
  Sender: FDA-Public Use
  Company Number: None

PATIENT
  Age: 55 Year
  Sex: Female
  Weight: 68.2 kg

DRUGS (1)
  1. ZICAM NASAL SWAB 4 TIMES IN 3 DAYS NASAL [Suspect]
     Indication: NASOPHARYNGITIS
     Dosage: ZICAM NASAL SWAB 4 TIMES IN 3 DAYS NASAL
     Route: 045
     Dates: start: 20090515, end: 20090517

REACTIONS (2)
  - ANOSMIA [None]
  - FEAR [None]
